FAERS Safety Report 8383356-7 (Version None)
Quarter: 2012Q2

REPORT INFORMATION
  Report Type: 
  Country: None (occurrence: None)
  Receive Date: 20120524
  Receipt Date: 20120510
  Transmission Date: 20120825
  Serious: Yes (Other)
  Sender: FDA-Public Use
  Company Number: CH-JNJFOC-20120510133

PATIENT
  Age: 49 Year
  Sex: Female

DRUGS (13)
  1. CLOZAPINE [Suspect]
     Indication: PRODUCT USED FOR UNKNOWN INDICATION
     Route: 065
     Dates: start: 20111027
  2. DIAZEPAM [Concomitant]
     Indication: PRODUCT USED FOR UNKNOWN INDICATION
     Dosage: TAPERED ON UP TO 75MG
     Route: 065
  3. ZYPREXA [Suspect]
     Indication: PRODUCT USED FOR UNKNOWN INDICATION
     Dosage: 1-0-1
     Route: 065
  4. ZYPREXA [Suspect]
     Route: 065
     Dates: start: 20111101
  5. DEPAKENE [Suspect]
     Dosage: 1-0-1
     Route: 065
  6. HALDOL [Suspect]
     Route: 048
  7. HALDOL [Suspect]
     Route: 048
     Dates: start: 20111202, end: 20111202
  8. CINACALCET HYDROCHLORIDE [Concomitant]
     Indication: PRODUCT USED FOR UNKNOWN INDICATION
     Dosage: 1-0-1 A DAY
     Route: 065
  9. CLOZAPINE [Suspect]
     Dosage: TAPERED ON UP TO 75MG
     Route: 065
  10. ZYPREXA [Suspect]
     Route: 065
     Dates: start: 20111006
  11. DEPAKENE [Suspect]
     Indication: PRODUCT USED FOR UNKNOWN INDICATION
     Route: 065
     Dates: start: 20111019
  12. HALDOL [Suspect]
     Indication: PRODUCT USED FOR UNKNOWN INDICATION
     Dosage: 15-0-0 DROPS
     Route: 048
     Dates: start: 20111008, end: 20111018
  13. HALDOL [Suspect]
     Dosage: 10-10-10 DROPS
     Route: 048
     Dates: start: 20111019

REACTIONS (1)
  - PANCYTOPENIA [None]
